FAERS Safety Report 23167219 (Version 1)
Quarter: 2023Q4

REPORT INFORMATION
  Report Type: Report from Study
  Country: GB (occurrence: GB)
  Receive Date: 20231109
  Receipt Date: 20231109
  Transmission Date: 20240109
  Serious: Yes (Other)
  Sender: FDA-Public Use
  Company Number: GB-002147023-NVSC2023GB235543

PATIENT
  Sex: Male

DRUGS (1)
  1. COSENTYX [Suspect]
     Active Substance: SECUKINUMAB
     Indication: Psoriatic arthropathy
     Dosage: 300 MG, QMO (1 PRE-FILLED DISPOSABLE INJECTION)
     Route: 058

REACTIONS (6)
  - Pneumonia [Unknown]
  - Pyrexia [Unknown]
  - Malaise [Unknown]
  - Pain [Unknown]
  - Infection [Unknown]
  - Product dose omission issue [Unknown]
